FAERS Safety Report 22389944 (Version 1)
Quarter: 2023Q2

REPORT INFORMATION
  Report Type: Spontaneous
  Country: US (occurrence: None)
  Receive Date: 20230530
  Receipt Date: 20230530
  Transmission Date: 20230721
  Serious: Yes (Life-Threatening, Hospitalization)
  Sender: FDA-Public Use
  Company Number: None

PATIENT
  Age: 40 Year
  Sex: Female
  Weight: 66.55 kg

DRUGS (18)
  1. REXULTI [Suspect]
     Active Substance: BREXPIPRAZOLE
     Indication: Depression
     Dosage: FREQUENCY : DAILY;?
     Route: 048
  2. BACITRACIN [Concomitant]
     Active Substance: BACITRACIN
  3. Bisacodyl 5mg EC [Concomitant]
  4. BUPROPION [Concomitant]
     Active Substance: BUPROPION
  5. Chlorpromazine 100mg [Concomitant]
  6. CLONIDINE [Concomitant]
     Active Substance: CLONIDINE
  7. DOCUSATE [Concomitant]
     Active Substance: DOCUSATE
  8. FAMOTIDINE [Concomitant]
     Active Substance: FAMOTIDINE
  9. FERROUS SULFATE [Concomitant]
     Active Substance: FERROUS SULFATE
  10. LEVOTHYROXINE [Concomitant]
     Active Substance: LEVOTHYROXINE
  11. LORATADINE [Concomitant]
     Active Substance: LORATADINE
  12. Multivitamin tablet [Concomitant]
  13. NORTRIPTYLINE [Concomitant]
     Active Substance: NORTRIPTYLINE
  14. OMEPRAZOLE [Concomitant]
     Active Substance: OMEPRAZOLE
  15. Prazosin 5mg [Concomitant]
  16. Senna 8.6mg [Concomitant]
  17. SERTRALINE [Concomitant]
     Active Substance: SERTRALINE HYDROCHLORIDE
  18. Sucralfate 1g [Concomitant]

REACTIONS (2)
  - Suicide attempt [None]
  - Intentional self-injury [None]

NARRATIVE: CASE EVENT DATE: 20230526
